FAERS Safety Report 8109440-0 (Version None)
Quarter: 2012Q1

REPORT INFORMATION
  Report Type: 
  Country: None (occurrence: None)
  Receive Date: 20120202
  Receipt Date: 20120110
  Transmission Date: 20120608
  Serious: No
  Sender: FDA-Public Use
  Company Number: US-AMGEN-USASP2012001824

PATIENT
  Sex: Female
  Weight: 49.887 kg

DRUGS (2)
  1. ENBREL [Suspect]
     Indication: RHEUMATOID ARTHRITIS
     Dosage: UNK
     Route: 058
     Dates: end: 20111001
  2. HUMIRA [Concomitant]
     Dosage: UNK
     Dates: start: 20110101

REACTIONS (2)
  - INJECTION SITE RASH [None]
  - INJECTION SITE PAIN [None]
